FAERS Safety Report 16752369 (Version 1)
Quarter: 2019Q3

REPORT INFORMATION
  Report Type: Spontaneous
  Country: None (occurrence: US)
  Receive Date: 20190828
  Receipt Date: 20190828
  Transmission Date: 20191005
  Serious: No
  Sender: FDA-Public Use
  Company Number: US-B.BRAUN MEDICAL INC.-2073798

PATIENT
  Age: 76 Year

DRUGS (1)
  1. DEXTROSE INJECTIONS USP 0264-7510-00 0264-7510-20 [Suspect]
     Active Substance: DEXTROSE

REACTIONS (2)
  - Product colour issue [None]
  - Pyrexia [Recovered/Resolved]

NARRATIVE: CASE EVENT DATE: 20190807
